FAERS Safety Report 17201097 (Version 2)
Quarter: 2019Q4

REPORT INFORMATION
  Report Type: Spontaneous
  Country: GB (occurrence: GB)
  Receive Date: 20191226
  Receipt Date: 20191227
  Transmission Date: 20200122
  Serious: Yes (Other)
  Sender: FDA-Public Use
  Company Number: GB-TORRENT-00022601

PATIENT
  Age: 72 Year
  Sex: Female
  Weight: 114 kg

DRUGS (9)
  1. FUROSEMIDE. [Concomitant]
     Active Substance: FUROSEMIDE
     Indication: PRODUCT USED FOR UNKNOWN INDICATION
     Dosage: 40 MGS
  2. TRAMADOL. [Concomitant]
     Active Substance: TRAMADOL
     Indication: ARTHRALGIA
     Dosage: 500 MG CAPSULES ; 4 TIMES A DAY
  3. LEVOTHYROXINE. [Concomitant]
     Active Substance: LEVOTHYROXINE
     Indication: THYROID DISORDER
     Dosage: 175 MCG
  4. CLOPIDOGREL BESILATE [Suspect]
     Active Substance: CLOPIDOGREL BESILATE
     Indication: PRODUCT USED FOR UNKNOWN INDICATION
     Dosage: UNKNOWN
  5. DIHYDROCODEINE [Concomitant]
     Active Substance: DIHYDROCODEINE
     Indication: ARTHRALGIA
     Dosage: 30 MGS
  6. RANITIDINE. [Concomitant]
     Active Substance: RANITIDINE
     Indication: HIATUS HERNIA
     Dosage: 150 MG TAKES ONCE
  7. VENTOLIN [Concomitant]
     Active Substance: ALBUTEROL SULFATE
     Indication: ASTHMA
     Dosage: 100 MCG AND ADDITIONAL TWO PRESSES WHEN REQUIRED
  8. PROZAC [Concomitant]
     Active Substance: FLUOXETINE HYDROCHLORIDE
     Indication: DEPRESSION
     Dosage: 60 MGS
  9. ASPIRIN. [Concomitant]
     Active Substance: ASPIRIN
     Indication: CARDIAC DISORDER
     Dosage: ONE TAB IN NIGHT

REACTIONS (5)
  - Decreased appetite [Unknown]
  - Condition aggravated [Not Recovered/Not Resolved]
  - Discomfort [Unknown]
  - Ageusia [Unknown]
  - Oral lichen planus [Not Recovered/Not Resolved]
